FAERS Safety Report 5052684-5 (Version None)
Quarter: 2006Q3

REPORT INFORMATION
  Report Type: 
  Country: None (occurrence: None)
  Receive Date: 20060717
  Receipt Date: 20060706
  Transmission Date: 20061208
  Serious: Yes (Other)
  Sender: FDA-Public Use
  Company Number: JP-JNJFOC-20060701753

PATIENT
  Sex: Female
  Weight: 77.7 kg

DRUGS (16)
  1. INFLIXIMAB, RECOMBINANT [Suspect]
     Dosage: BLINDED DOSAGE OF 3, 6 OR 10 MG/KG
     Route: 042
  2. INFLIXIMAB, RECOMBINANT [Suspect]
     Route: 042
  3. INFLIXIMAB, RECOMBINANT [Suspect]
     Route: 042
  4. INFLIXIMAB, RECOMBINANT [Suspect]
     Indication: RHEUMATOID ARTHRITIS
     Route: 042
  5. RHEUMATREX [Concomitant]
     Route: 048
  6. RHEUMATREX [Concomitant]
     Dosage: STARTED PRIOR TO 25-JAN-2006
     Route: 048
  7. RHEUMATREX [Concomitant]
     Indication: RHEUMATOID ARTHRITIS
     Route: 048
  8. FOLIAMIN [Concomitant]
     Indication: PROPHYLAXIS
     Route: 048
  9. PREDNISOLONE [Concomitant]
     Route: 048
  10. PREDNISOLONE [Concomitant]
     Indication: RHEUMATOID ARTHRITIS
     Dosage: INITIATED BEFORE 25-JAN-2006
     Route: 048
  11. AZULFIDINE EN-TABS [Concomitant]
     Indication: RHEUMATOID ARTHRITIS
     Dosage: INITIATED BEFORE 25-JAN-2006
  12. LOXONIN [Concomitant]
     Indication: RHEUMATOID ARTHRITIS
     Route: 048
  13. SELEBEX [Concomitant]
     Indication: GASTROINTESTINAL DISORDER THERAPY
     Route: 048
  14. ACINON [Concomitant]
     Indication: GASTROINTESTINAL DISORDER THERAPY
     Dosage: INITIATED BEFORE 25-JAN-2006
  15. GASLON N [Concomitant]
     Indication: GASTROINTESTINAL DISORDER THERAPY
     Dosage: INITIATED BEFORE 25-JAN-2006
     Route: 048
  16. ISCONTIN [Concomitant]
     Indication: ANTIBIOTIC PROPHYLAXIS
     Route: 048

REACTIONS (1)
  - TONGUE NEOPLASM MALIGNANT STAGE UNSPECIFIED [None]
